FAERS Safety Report 13916266 (Version 1)
Quarter: 2017Q3

REPORT INFORMATION
  Report Type: Report from Study
  Country: IT (occurrence: IT)
  Receive Date: 20170829
  Receipt Date: 20170829
  Transmission Date: 20171127
  Serious: Yes (Life-Threatening, Other)
  Sender: FDA-Public Use
  Company Number: IT-MYLANLABS-2017M1052440

PATIENT
  Age: 75 Year
  Sex: Male
  Weight: 71 kg

DRUGS (55)
  1. PREDNISONE. [Suspect]
     Active Substance: PREDNISONE
     Dosage: 70 MG, UNK
     Dates: start: 20160729
  2. DARATUMUMAB [Suspect]
     Active Substance: DARATUMUMAB
     Indication: PLASMA CELL MYELOMA
     Dosage: 1136 MG, QW
     Route: 042
     Dates: start: 20160530, end: 20160614
  3. MELPHALAN. [Suspect]
     Active Substance: MELPHALAN
     Indication: PLASMA CELL MYELOMA
     Dosage: 16 MG, CYCLE
     Dates: start: 20160530
  4. VELLOFENT [Concomitant]
     Indication: PAIN
     Dosage: 133 MG, 1 AS NECESSARY
     Route: 060
     Dates: start: 20160419
  5. TAZOCIN [Concomitant]
     Active Substance: PIPERACILLIN SODIUM\TAZOBACTAM SODIUM
     Indication: BACTERIAL INFECTION
     Dosage: OF 4.5 MG 3 IN 1 DAY
     Route: 042
     Dates: start: 20160604, end: 20160614
  6. SOLDESAM [Concomitant]
     Active Substance: DEXAMETHASONE
     Indication: BACK PAIN
  7. ACICLOVIR [Concomitant]
     Active Substance: ACYCLOVIR
     Dosage: 800 MG, QD
     Dates: start: 20161006
  8. VALGANCICLOVIR. [Concomitant]
     Active Substance: VALGANCICLOVIR
     Indication: ANTIVIRAL PROPHYLAXIS
     Dosage: 900 MG, QD
     Route: 048
     Dates: start: 20160711
  9. GANCICLOVIR. [Concomitant]
     Active Substance: GANCICLOVIR
     Dosage: 300 MG, QD
     Route: 042
     Dates: start: 20160627
  10. CANCIDAS [Concomitant]
     Active Substance: CASPOFUNGIN ACETATE
     Dosage: 50 MG, QD
     Route: 042
     Dates: start: 20160624
  11. DIBASE [Concomitant]
     Active Substance: CHOLECALCIFEROL
     Indication: PROPHYLAXIS
  12. PANTOPRAZOLE [Concomitant]
     Active Substance: PANTOPRAZOLE
     Indication: FUNCTIONAL GASTROINTESTINAL DISORDER
     Dosage: 40 MG
     Route: 048
     Dates: start: 20160530
  13. LEVOXACIN [Concomitant]
     Active Substance: LEVOFLOXACIN
     Indication: PYREXIA
     Dosage: 750 MG, QD
     Route: 042
     Dates: start: 20160620
  14. BACTRIM [Concomitant]
     Active Substance: SULFAMETHOXAZOLE\TRIMETHOPRIM
     Indication: INTERSTITIAL LUNG DISEASE
     Dosage: 960 MG, QID
     Route: 048
     Dates: start: 20160715
  15. PREDNISONE. [Suspect]
     Active Substance: PREDNISONE
     Dosage: 70 MG, UNK
     Dates: start: 20160909
  16. LYRICA [Concomitant]
     Active Substance: PREGABALIN
     Indication: PAIN
     Dosage: 75 MG 2 IN 1 DAY
     Route: 048
     Dates: start: 20160419
  17. CLEXANE [Concomitant]
     Active Substance: ENOXAPARIN SODIUM
     Dosage: 6000 IU, 2 IN 1 DAY
     Dates: start: 20160614
  18. TARGIN [Concomitant]
     Active Substance: NALOXONE HYDROCHLORIDE\OXYCODONE HYDROCHLORIDE
     Indication: BACK PAIN
  19. ACICLOVIR [Concomitant]
     Active Substance: ACYCLOVIR
     Indication: ANTIVIRAL PROPHYLAXIS
     Dosage: 800 MG, QD
     Route: 048
     Dates: start: 20160530
  20. EFFENTORA [Concomitant]
     Active Substance: FENTANYL CITRATE
     Indication: PAIN
     Dosage: 400 MCG 1 AS NECESSARY
     Route: 048
     Dates: start: 20160513, end: 20160513
  21. DELTACORTENE [Concomitant]
     Active Substance: PREDNISONE
     Indication: HYPOTENSION
     Dosage: 50 MG, QD
     Route: 048
     Dates: start: 20160609
  22. MERREM [Concomitant]
     Active Substance: MEROPENEM
     Indication: PYREXIA
     Dosage: 3 IN 1 DAY
     Route: 042
     Dates: start: 20160626
  23. TAZOCIN [Concomitant]
     Active Substance: PIPERACILLIN SODIUM\TAZOBACTAM SODIUM
     Indication: PYREXIA
  24. OXYCODONE HYDROCHLORIDE. [Concomitant]
     Active Substance: OXYCODONE HYDROCHLORIDE
     Indication: BONE PAIN
     Dosage: 20 MG 2 IN 1 DAY
     Dates: start: 20160420
  25. NALOXONE [Concomitant]
     Active Substance: NALOXONE
     Indication: BONE PAIN
     Dosage: 10 MG 2 IN 1 DAY
     Dates: start: 20160420
  26. VENITAL [Concomitant]
     Active Substance: HUMAN IMMUNOGLOBULIN G
     Indication: METAPNEUMOVIRUS INFECTION
     Dosage: 25 G, QD
     Route: 042
     Dates: start: 20160630
  27. ZOMETA [Concomitant]
     Active Substance: ZOLEDRONIC ACID
     Indication: PROPHYLAXIS
     Dosage: 4 MG
     Route: 042
     Dates: start: 20160406, end: 20160614
  28. OXYCODONE HYDROCHLORIDE. [Concomitant]
     Active Substance: OXYCODONE HYDROCHLORIDE
     Indication: PAIN
     Dosage: 20 MG 2 IN 1 DAY
     Route: 048
     Dates: start: 20160407
  29. NALOXONE [Concomitant]
     Active Substance: NALOXONE
     Indication: PAIN
     Dosage: 5 MG 2 IN 1 DAY
     Route: 048
     Dates: start: 20160407
  30. VELCADE [Suspect]
     Active Substance: BORTEZOMIB
     Dosage: 2.09 MG, UNK
     Dates: start: 20160728
  31. VELCADE [Suspect]
     Active Substance: BORTEZOMIB
     Dosage: 2.18 MG, UNK
     Dates: start: 20160818
  32. CLEXANE [Concomitant]
     Active Substance: ENOXAPARIN SODIUM
     Dosage: 6000 IU, 2 IN 1 DAY
     Dates: start: 20160720
  33. TARGIN [Concomitant]
     Active Substance: NALOXONE HYDROCHLORIDE\OXYCODONE HYDROCHLORIDE
     Indication: PAIN
     Dosage: 20 MG 2 IN 1 DAY
     Route: 048
     Dates: start: 20160513, end: 20160513
  34. OMEPRAZOLE. [Concomitant]
     Active Substance: OMEPRAZOLE
     Indication: GASTROINTESTINAL DISORDER
     Dosage: 20 MG, QD
     Route: 048
     Dates: start: 20160330, end: 20160330
  35. CANCIDAS [Concomitant]
     Active Substance: CASPOFUNGIN ACETATE
     Indication: PYREXIA
     Dosage: 70 MG, UNK
     Route: 042
     Dates: start: 20160623
  36. VELCADE [Suspect]
     Active Substance: BORTEZOMIB
     Indication: PLASMA CELL MYELOMA
     Dosage: 2 MG, QW
     Route: 058
     Dates: start: 20160530
  37. MELPHALAN. [Suspect]
     Active Substance: MELPHALAN
     Dosage: 10 MG, UNK
     Dates: start: 20160728
  38. LYRICA [Concomitant]
     Active Substance: PREGABALIN
     Indication: BONE PAIN
     Dosage: 75 MG 2 IN 1 DAY
     Dates: start: 20160513
  39. CLEXANE [Concomitant]
     Active Substance: ENOXAPARIN SODIUM
     Indication: EMBOLISM
     Dosage: 4000 IU, QD
     Route: 058
     Dates: start: 20160330
  40. CLEXANE [Concomitant]
     Active Substance: ENOXAPARIN SODIUM
     Indication: THROMBOSIS PROPHYLAXIS
     Dosage: 4000 IU, QD
     Dates: start: 20160421
  41. SOLDESAM [Concomitant]
     Active Substance: DEXAMETHASONE
     Indication: PAIN
     Dosage: 4 MG 2 IN 1 DAY
     Route: 048
     Dates: start: 20160513, end: 20160513
  42. ZEFFIX [Concomitant]
     Active Substance: LAMIVUDINE
     Indication: ANTIVIRAL PROPHYLAXIS
     Dosage: 100 MG
     Route: 048
     Dates: start: 20160530
  43. EFFENTORA [Concomitant]
     Active Substance: FENTANYL CITRATE
     Indication: BACK PAIN
  44. ALLOPURINOL. [Concomitant]
     Active Substance: ALLOPURINOL
     Indication: HYPERURICAEMIA
     Dosage: 300 MG, QD
     Route: 048
     Dates: start: 20160531
  45. GANCICLOVIR. [Concomitant]
     Active Substance: GANCICLOVIR
     Indication: CYTOMEGALOVIRUS INFECTION
     Dosage: 350 MG, BID
     Route: 042
     Dates: start: 20160620
  46. BACTRIM [Concomitant]
     Active Substance: SULFAMETHOXAZOLE\TRIMETHOPRIM
     Indication: INTERSTITIAL LUNG DISEASE
     Dosage: 1440 MG, UNK
     Route: 042
     Dates: start: 20160626
  47. PREDNISONE. [Suspect]
     Active Substance: PREDNISONE
     Indication: PLASMA CELL MYELOMA
     Dosage: 110 MG, CYCLE
     Route: 048
     Dates: start: 20160531
  48. MELPHALAN. [Suspect]
     Active Substance: MELPHALAN
     Dosage: 10 MG, UNK
     Dates: start: 20160908
  49. MOVICOL [Concomitant]
     Active Substance: POLYETHYLENE GLYCOL 3350\POTASSIUM CHLORIDE\SODIUM BICARBONATE\SODIUM CHLORIDE
     Indication: ANTIFUNGAL PROPHYLAXIS
     Dosage: 15 MG 2 IN 1 DAY
     Route: 048
     Dates: start: 20160330
  50. VELLOFENT [Concomitant]
     Indication: BONE PAIN
  51. CLEXANE [Concomitant]
     Active Substance: ENOXAPARIN SODIUM
     Dosage: 7000 IU, BID
     Dates: start: 20160625
  52. DIBASE [Concomitant]
     Active Substance: CHOLECALCIFEROL
     Indication: BONE PAIN
     Dosage: 100000 IU MONTHLY
     Route: 048
     Dates: start: 20160530
  53. PANTOPRAZOLE [Concomitant]
     Active Substance: PANTOPRAZOLE
     Dosage: 20 MG, QD
     Dates: start: 20160728
  54. FOLIC ACID. [Concomitant]
     Active Substance: FOLIC ACID
     Indication: VITAMIN SUPPLEMENTATION
     Dosage: 5 MG, QD
     Route: 048
     Dates: start: 20160530
  55. COUMADIN [Concomitant]
     Active Substance: WARFARIN SODIUM
     Indication: PULMONARY EMBOLISM
     Dosage: UNK
     Route: 048
     Dates: start: 20160615

REACTIONS (9)
  - Pulmonary embolism [Unknown]
  - Hypotension [Unknown]
  - Cytomegalovirus test positive [Unknown]
  - Drug dose omission [Unknown]
  - Metapneumovirus infection [Unknown]
  - Acute respiratory failure [Unknown]
  - Interstitial lung disease [Unknown]
  - Pyrexia [Recovered/Resolved]
  - Systemic inflammatory response syndrome [Unknown]

NARRATIVE: CASE EVENT DATE: 20160614
